FAERS Safety Report 7681571-9 (Version None)
Quarter: 2011Q3

REPORT INFORMATION
  Report Type: 
  Country: None (occurrence: None)
  Receive Date: 20110812
  Receipt Date: 20110810
  Transmission Date: 20111222
  Serious: Yes (Death)
  Sender: FDA-Public Use
  Company Number: PHFR2011GB03042

PATIENT
  Sex: Female

DRUGS (3)
  1. CLOZAPINE [Suspect]
     Indication: SCHIZOPHRENIA
     Dosage: 400 MG
     Route: 048
     Dates: start: 19950731
  2. CLOZAPINE [Suspect]
     Dosage: 375 MG, DAILY
     Route: 048
  3. FLUOXETINE [Concomitant]
     Indication: SCHIZOPHRENIA
     Dosage: 60 MG, DAILY
     Route: 065
     Dates: start: 19990101

REACTIONS (1)
  - SUDDEN DEATH [None]
